FAERS Safety Report 5151449-3 (Version None)
Quarter: 2006Q4

REPORT INFORMATION
  Report Type: 
  Country: None (occurrence: None)
  Receive Date: 20061114
  Receipt Date: 20061114
  Transmission Date: 20070319
  Serious: Yes (Other)
  Sender: FDA-Public Use
  Company Number: None

PATIENT
  Age: 46 Year
  Sex: Female
  Weight: 91.6266 kg

DRUGS (1)
  1. ACETAMINOPHEN [Suspect]
     Indication: POSTOPERATIVE ANALGESIA
     Dosage: 2 CAPLETS    2 TIMES PER DAY   PO
     Route: 048
     Dates: start: 20060815, end: 20061110

REACTIONS (5)
  - ABNORMAL FAECES [None]
  - DIARRHOEA [None]
  - MALAISE [None]
  - PHARMACEUTICAL PRODUCT COMPLAINT [None]
  - PROCTALGIA [None]
